FAERS Safety Report 4853534-X (Version None)
Quarter: 2005Q4

REPORT INFORMATION
  Report Type: 
  Country: None (occurrence: None)
  Receive Date: 20051214
  Receipt Date: 20051202
  Transmission Date: 20060501
  Serious: Yes (Other)
  Sender: FDA-Public Use
  Company Number: DE-JNJFOC-20051201124

PATIENT
  Age: 70 Year
  Sex: Male

DRUGS (3)
  1. HALDOL [Suspect]
     Dosage: DURATION APPROXIMATELY 30 YEARS
     Route: 048
  2. ZYPREXA [Concomitant]
  3. ZYPREXA [Concomitant]

REACTIONS (2)
  - CHRONIC LYMPHOCYTIC LEUKAEMIA [None]
  - TREMOR [None]
